FAERS Safety Report 6441727-X (Version None)
Quarter: 2009Q4

REPORT INFORMATION
  Report Type: 
  Country: None (occurrence: None)
  Receive Date: 20091116
  Receipt Date: 20091110
  Transmission Date: 20100525
  Serious: Yes (Hospitalization, Other)
  Sender: FDA-Public Use
  Company Number: DE-SANOFI-AVENTIS-200912115DE

PATIENT
  Age: 64 Year
  Sex: Male
  Weight: 81 kg

DRUGS (16)
  1. LEFLUNOMIDE [Suspect]
     Indication: RHEUMATOID ARTHRITIS
     Dosage: DOSE UNIT: 10 MG
     Route: 048
     Dates: start: 20040302
  2. LEFLUNOMIDE [Suspect]
     Dosage: DOSE UNIT: 20 MG
     Route: 048
     Dates: start: 20021029, end: 20040302
  3. CORTISON CIBA [Concomitant]
     Dosage: DOSE AS USED: NOT REPORTED
  4. KARVEZIDE [Concomitant]
     Indication: HYPERTENSION
     Dosage: DOSE AS USED: 150 MG / 125 MG
     Route: 048
  5. DECORTIN [Concomitant]
     Indication: POLYARTHRITIS
     Dosage: DOSE UNIT: 5 MG
     Route: 048
  6. LEVEMIR [Concomitant]
     Dosage: DOSE AS USED: NOT REPORTED
     Route: 058
  7. INSULIN HUMAN [Concomitant]
     Dosage: DOSE AS USED: NOT REPORTED
     Route: 058
  8. APROVEL [Concomitant]
     Indication: HYPERTENSION
     Route: 048
     Dates: start: 20050101
  9. NORVASC [Concomitant]
     Indication: HYPERTENSION
     Route: 048
     Dates: start: 20050101
  10. AMPICILLIN [Concomitant]
     Indication: PROPHYLAXIS
     Route: 048
     Dates: start: 20050101
  11. PANTOZOL [Concomitant]
     Indication: PROPHYLAXIS
     Dates: start: 20050101
  12. METOCLOPRAMIDE HYDROCHLORIDE [Concomitant]
     Indication: VOMITING
     Route: 048
     Dates: start: 20050101
  13. CIPRO [Concomitant]
     Indication: DRUG USE FOR UNKNOWN INDICATION
     Route: 048
     Dates: start: 20050101
  14. FUROSEMIDE [Concomitant]
     Indication: DRUG USE FOR UNKNOWN INDICATION
     Route: 048
     Dates: start: 20050101
  15. AMPICILLIN AND SULBACTAM [Concomitant]
     Indication: DRUG USE FOR UNKNOWN INDICATION
     Dates: start: 20050101
  16. ENOXAPARIN SODIUM [Concomitant]
     Indication: DRUG USE FOR UNKNOWN INDICATION
     Dates: start: 20050101

REACTIONS (4)
  - ABDOMINAL PAIN [None]
  - DECREASED APPETITE [None]
  - INFLAMMATION [None]
  - PANCREATIC CARCINOMA RESECTABLE [None]
